FAERS Safety Report 22307138 (Version 1)
Quarter: 2023Q2

REPORT INFORMATION
  Report Type: Spontaneous
  Country: JP (occurrence: JP)
  Receive Date: 20230511
  Receipt Date: 20230511
  Transmission Date: 20230722
  Serious: Yes (Hospitalization, Other)
  Sender: FDA-Public Use
  Company Number: JP-MYLANLABS-2023M1044760

PATIENT
  Age: 72 Year
  Sex: Male

DRUGS (1)
  1. LEVOFLOXACIN [Suspect]
     Active Substance: LEVOFLOXACIN
     Indication: Product used for unknown indication
     Dosage: UNK
     Route: 047
     Dates: start: 202204, end: 202204

REACTIONS (3)
  - Mental impairment [Unknown]
  - Hypoxic-ischaemic encephalopathy [Unknown]
  - Anaphylactic shock [Unknown]
